FAERS Safety Report 9084972 (Version 1)
Quarter: 2013Q1

REPORT INFORMATION
  Report Type: Report from Study
  Country: PR (occurrence: PR)
  Receive Date: 20130130
  Receipt Date: 20130130
  Transmission Date: 20140127
  Serious: No
  Sender: FDA-Public Use
  Company Number: PR-ABBOTT-12P-131-0986840-00

PATIENT
  Sex: Female

DRUGS (1)
  1. HUMIRA [Suspect]
     Indication: PRODUCT USED FOR UNKNOWN INDICATION
     Route: 058

REACTIONS (8)
  - Fatigue [Unknown]
  - Alopecia [Unknown]
  - Pain [Unknown]
  - Headache [Unknown]
  - Eye infection [Unknown]
  - Swelling face [Unknown]
  - Pruritus generalised [Unknown]
  - Drug ineffective [Unknown]
